FAERS Safety Report 6572754-X (Version None)
Quarter: 2010Q1

REPORT INFORMATION
  Report Type: 
  Country: None (occurrence: None)
  Receive Date: 20100205
  Receipt Date: 20100129
  Transmission Date: 20100710
  Serious: Yes (Other)
  Sender: FDA-Public Use
  Company Number: UG-B.I. PHARMACEUTICALS,INC./RIDGEFIELD-2009-BP-14619BP

PATIENT
  Age: 27 Year
  Sex: Female

DRUGS (6)
  1. VIRAMUNE [Suspect]
     Indication: ANTIVIRAL TREATMENT
     Dosage: 400 MG
     Route: 048
     Dates: start: 20081226, end: 20090303
  2. SUSTIVA [Suspect]
     Indication: ANTIVIRAL TREATMENT
     Dosage: 600 MG
     Route: 048
     Dates: start: 20060206, end: 20081212
  3. VIREAD [Suspect]
     Indication: ANTIVIRAL TREATMENT
     Dosage: 300 MG
     Route: 048
     Dates: start: 20060207, end: 20090303
  4. EPIVIR [Suspect]
     Indication: ANTIVIRAL TREATMENT
     Dosage: 300 MG
     Route: 048
     Dates: start: 20051213
  5. ZIAGEN [Suspect]
     Indication: ANTIVIRAL TREATMENT
     Dosage: 600 MG
     Route: 048
     Dates: start: 20090303
  6. ALUVIA [Concomitant]
     Dosage: 1000 MG
     Dates: start: 20090303

REACTIONS (1)
  - ABORTION SPONTANEOUS [None]
